FAERS Safety Report 4961926-3 (Version None)
Quarter: 2006Q2

REPORT INFORMATION
  Report Type: 
  Country: None (occurrence: None)
  Receive Date: 20060404
  Receipt Date: 20050606
  Transmission Date: 20061013
  Serious: Yes (Hospitalization, Other)
  Sender: FDA-Public Use
  Company Number: US-MERCK-0506USA01008

PATIENT
  Age: 76 Year
  Sex: Male
  Weight: 105 kg

DRUGS (6)
  1. VIOXX [Suspect]
     Indication: LUMBAR RADICULOPATHY
     Route: 048
     Dates: start: 20040517, end: 20040601
  2. VIOXX [Suspect]
     Route: 048
     Dates: start: 20040601
  3. VIOXX [Suspect]
     Route: 048
     Dates: start: 20040401, end: 20040901
  4. VIOXX [Suspect]
     Indication: PAIN IN EXTREMITY
     Route: 048
     Dates: start: 20040517, end: 20040601
  5. VIOXX [Suspect]
     Route: 048
     Dates: start: 20040601
  6. VIOXX [Suspect]
     Route: 048
     Dates: start: 20040401, end: 20040901

REACTIONS (10)
  - ANGINA PECTORIS [None]
  - CEREBROVASCULAR ACCIDENT [None]
  - DIABETES MELLITUS [None]
  - HEADACHE [None]
  - HYPERTENSION [None]
  - MENTAL STATUS CHANGES [None]
  - MYOCARDIAL INFARCTION [None]
  - PNEUMONIA [None]
  - RHINITIS ALLERGIC [None]
  - TRANSIENT ISCHAEMIC ATTACK [None]
